FAERS Safety Report 9225302 (Version 1)
Quarter: 2013Q2

REPORT INFORMATION
  Report Type: Spontaneous
  Country: US (occurrence: US)
  Receive Date: 20130411
  Receipt Date: 20130411
  Transmission Date: 20140414
  Serious: Yes (Death, Other)
  Sender: FDA-Public Use
  Company Number: PHEH2013US007877

PATIENT
  Sex: Male
  Weight: 98 kg

DRUGS (52)
  1. RITALIN [Suspect]
     Indication: FATIGUE
     Dosage: 1 DF, BID
  2. SUTENT [Suspect]
     Indication: RENAL CELL CARCINOMA
     Dosage: 25 MG, UNK
     Route: 048
     Dates: start: 20120802, end: 20121115
  3. ANTIEMETICS [Concomitant]
     Dosage: UNK UKN, UNK
  4. OXYGEN THERAPY [Concomitant]
     Dosage: UNK UKN, UNK
  5. AXITINIB [Concomitant]
     Indication: RENAL CANCER METASTATIC
     Dosage: 5 MG, BID
     Dates: start: 201301
  6. AXITINIB [Concomitant]
     Dosage: UNK UKN, UNK
  7. VICODIN [Concomitant]
     Indication: PAIN
     Dosage: UNK UKN, UNK
  8. PERCOCET [Concomitant]
     Indication: PAIN
     Dosage: UNK UKN, UNK
  9. MIRALAX [Concomitant]
     Dosage: UNK UKN, QOD
  10. MIRALAX [Concomitant]
     Dosage: 17 G, DAILY
     Route: 048
  11. ALKA SELTZER ANTI GAS [Concomitant]
     Indication: FLATULENCE
     Dosage: UNK UKN, UNK
  12. LUNESTA [Concomitant]
     Indication: INSOMNIA
     Dosage: UNK UKN, UNK
  13. COMBIGAN [Concomitant]
     Dosage: UNK UKN, UNK
  14. ALLOPURINOL [Concomitant]
     Dosage: UNK UKN, UNK
  15. ASPIRIN [Concomitant]
     Dosage: 81 MG, UNK
  16. LIPITOR [Concomitant]
     Dosage: 10 MG, UNK (AT BEDTIME)
  17. ASTELIN [Concomitant]
     Dosage: UNK UKN, BID
  18. LOTRISONE [Concomitant]
     Dosage: UNK UKN, BID
  19. WELLBUTRIN XL [Concomitant]
     Dosage: 150 MG, UNK
  20. VITAMIN D3 [Concomitant]
     Dosage: 1000 IU, BID
  21. DECADRON                                /CAN/ [Concomitant]
     Dosage: 10 MG, BID
     Route: 048
  22. LOVENOX [Concomitant]
     Dosage: 40 MG, UNK (AT BEDTIMA)
     Route: 058
  23. ADVAIR DISKUS [Concomitant]
     Dosage: 1 DF, BID
  24. LASIX [Concomitant]
     Dosage: 20 MG, UNK
     Route: 048
  25. MUCINEX [Concomitant]
     Dosage: 1200 MG, BID
  26. HYDROCORTISONE [Concomitant]
     Dosage: 1 DF, BID
  27. LACTULOSE [Concomitant]
     Dosage: 20 G, UNK
     Route: 048
  28. XALATAN [Concomitant]
     Dosage: UNK UKN, UNK
  29. SYNTHROID [Concomitant]
     Dosage: 25 UG, UNK
  30. LIDOCAINE [Concomitant]
     Dosage: 1 DF, UNK
     Route: 061
  31. ZESTRIL [Concomitant]
     Dosage: 5 MG, UNK (AT BEDTIME)
     Route: 048
  32. MILK OF MAGNESIA [Concomitant]
     Dosage: 30 ML, UNK
  33. MAGNESIUM OXIDE [Concomitant]
     Dosage: 400 MG, UNK
     Route: 048
  34. OCULAR LUBRICANT                   /01768801/ [Concomitant]
     Dosage: 1 DRP, QID
  35. ZOFRAN [Concomitant]
     Indication: NAUSEA
     Dosage: UNK UKN, Q8H
  36. ZOFRAN [Concomitant]
     Indication: VOMITING
  37. METAMUCIL [Concomitant]
     Dosage: 2 DF, UNK (2 TEASPOONS DAILY)
  38. BETAPACE [Concomitant]
     Indication: CARDIAC FAILURE CHRONIC
     Dosage: 80 MG, BID
     Route: 048
  39. BETAPACE [Concomitant]
     Indication: VENTRICULAR EXTRASYSTOLES
  40. ALDACTONE [Concomitant]
     Dosage: 25 MG, UNK
  41. EFFEXOR XR [Concomitant]
     Dosage: 75 MG, UNK
  42. ALBUTEROL [Concomitant]
     Dosage: UNK UKN, Q6H (AS PER NEEDED)
  43. COMBIVENT [Concomitant]
     Dosage: UNK UKN, QID (AS PER NEEDED)
  44. DULCOLAX [Concomitant]
     Dosage: UNK UKN, PRN
  45. HALDOL [Concomitant]
     Dosage: 1 MG, Q12H
  46. DILAUDID [Concomitant]
     Dosage: 0.5 MG, Q3H
     Route: 042
  47. DILAUDID [Concomitant]
     Dosage: 1 MG, Q3H (AS PER NEEDED)
     Route: 042
  48. MAGNESIUM SULFATE [Concomitant]
     Dosage: 2 G, PRN
  49. REGLAN                                  /USA/ [Concomitant]
     Dosage: 10 MG, Q4H
     Route: 048
  50. AMBIEN [Concomitant]
     Dosage: 5 MG, UNK (AT BEDTIME)
     Route: 048
  51. OXYIR [Concomitant]
     Dosage: 5 MG, Q4H
  52. OXYIR [Concomitant]
     Dosage: 10 MG, Q4H (AS PER NEEDED)

REACTIONS (35)
  - Death [Fatal]
  - Chronic obstructive pulmonary disease [Unknown]
  - Dyspnoea [Unknown]
  - Dyspnoea exertional [Unknown]
  - Pulmonary fibrosis [Unknown]
  - Haemothorax [Unknown]
  - Atelectasis [Unknown]
  - Metastatic renal cell carcinoma [Unknown]
  - Lung cancer metastatic [Unknown]
  - Pulmonary mass [Unknown]
  - Lymphadenopathy mediastinal [Unknown]
  - Metastases to spine [Unknown]
  - Back pain [Not Recovered/Not Resolved]
  - Renal failure chronic [Unknown]
  - Constipation [Not Recovered/Not Resolved]
  - Diarrhoea [Unknown]
  - Bowel movement irregularity [Unknown]
  - Abdominal distension [Unknown]
  - Flatulence [Unknown]
  - Fatigue [Recovering/Resolving]
  - Asthenia [Unknown]
  - Breakthrough pain [Unknown]
  - Frustration [Unknown]
  - Hypothyroidism [Unknown]
  - Pain [Unknown]
  - Gait disturbance [Unknown]
  - Anxiety [Unknown]
  - Abdominal pain [Unknown]
  - Somnolence [Unknown]
  - Nausea [Not Recovered/Not Resolved]
  - Weight decreased [Unknown]
  - Decreased appetite [Unknown]
  - Hypertension [Recovering/Resolving]
  - Insomnia [Unknown]
  - Arthralgia [Unknown]
